FAERS Safety Report 15266698 (Version 3)
Quarter: 2018Q4

REPORT INFORMATION
  Report Type: Spontaneous
  Country: US (occurrence: US)
  Receive Date: 20180810
  Receipt Date: 20181207
  Transmission Date: 20190204
  Serious: No
  Sender: FDA-Public Use
  Company Number: US-SA-2018SA219294

PATIENT
  Age: 73 Year
  Sex: Female

DRUGS (4)
  1. VITAMIN D2 [Concomitant]
     Active Substance: ERGOCALCIFEROL
  2. DUPIXENT [Suspect]
     Active Substance: DUPILUMAB
     Indication: DERMATITIS ATOPIC
     Dosage: 600 MG, 2 SYRINGES UNDER THE SKIN
     Route: 058
     Dates: start: 20180713
  3. ZOLPIDEM TARTRATE. [Concomitant]
     Active Substance: ZOLPIDEM TARTRATE
  4. DUPIXENT [Suspect]
     Active Substance: DUPILUMAB
     Dosage: 300 MG, QOW
     Route: 058
     Dates: start: 20180727

REACTIONS (11)
  - Urticaria [Unknown]
  - Nausea [Unknown]
  - Skin burning sensation [Unknown]
  - Injection site pain [Unknown]
  - Injection site erythema [Unknown]
  - Injection site warmth [Unknown]
  - Injection site inflammation [Unknown]
  - Asthenia [Unknown]
  - Injection site discolouration [Unknown]
  - Underdose [Unknown]
  - Rash [Unknown]

NARRATIVE: CASE EVENT DATE: 20181129
